FAERS Safety Report 14307012 (Version 3)
Quarter: 2018Q2

REPORT INFORMATION
  Report Type: Spontaneous
  Country: NL (occurrence: NL)
  Receive Date: 20171220
  Receipt Date: 20180422
  Transmission Date: 20180711
  Serious: Yes (Other)
  Sender: FDA-Public Use
  Company Number: NL-APOTEX-2017AP022590

PATIENT
  Age: 43 Year
  Sex: Male

DRUGS (2)
  1. PAROXETINE TABLET [Suspect]
     Active Substance: PAROXETINE
     Indication: DEPRESSION
     Dosage: 20 MG, QD
     Route: 065
     Dates: start: 200805, end: 201011
  2. PAROXETINE TABLET [Suspect]
     Active Substance: PAROXETINE
     Dosage: REDUCE THE DOSAGE OF PAROXETINE
     Route: 065

REACTIONS (8)
  - Ejaculation failure [Recovering/Resolving]
  - Anosmia [Recovered/Resolved]
  - Erectile dysfunction [Unknown]
  - Hypoaesthesia [Unknown]
  - Sensory loss [Recovered/Resolved]
  - Ageusia [Recovered/Resolved]
  - Genital hypoaesthesia [Recovering/Resolving]
  - Sexual dysfunction [Recovering/Resolving]

NARRATIVE: CASE EVENT DATE: 200805
